FAERS Safety Report 9546927 (Version 1)
Quarter: 2013Q2

REPORT INFORMATION
  Report Type: Spontaneous
  Country: US (occurrence: None)
  Receive Date: 20130606
  Receipt Date: 20130606
  Transmission Date: 20140414
  Serious: Yes (Hospitalization)
  Sender: FDA-Public Use
  Company Number: 2013SIPUSA00017

PATIENT
  Age: 81 Year
  Sex: Male

DRUGS (14)
  1. SIPULEUCEL-T [Suspect]
     Indication: PROSTATE CANCER METASTATIC
     Route: 042
     Dates: start: 20120709, end: 20120709
  2. PREDNISONE (PREDNISONE) [Concomitant]
  3. ABIRATERONE (ABIRATERONE ACETATE) [Concomitant]
  4. LEUPROLIDE (LEUPROLIDE) [Concomitant]
  5. CRESTOR (ROSUVASTATIN CALCIUM) [Concomitant]
  6. ACETYLSALICYLIC ACID W/DIPYRIDAMOLE (ACETYLSALICYLIC ACID, DIPYRIDAMOLE) [Concomitant]
  7. FEXOFENADINE HYDROCHLORIDE (FEXOFENADINE HYDROCHLORIDE) [Concomitant]
  8. MULTIVITAMIN (VITAMINS NOS) [Concomitant]
  9. OMEPRAZOLE (OMEPRAZOLE) [Concomitant]
  10. OSCAL (CALCITRIOL) [Concomitant]
  11. CINNAMOMUM VERUM (CINNAMOMUM VERUM) [Concomitant]
  12. RAPAFLO (SILODOSIN) HYDROCODONE BITARTRATE, PARACETAMOL (HYDROCODONE BITARTRATE, PARACETAMOL) [Concomitant]
  13. FENTANYL (FENTANYL) [Concomitant]
  14. OXYCODONE (OXYCODONE) [Concomitant]

REACTIONS (1)
  - Asthenia [None]
